FAERS Safety Report 18334117 (Version 1)
Quarter: 2020Q3

REPORT INFORMATION
  Report Type: Spontaneous
  Country: US (occurrence: US)
  Receive Date: 20200930
  Receipt Date: 20200930
  Transmission Date: 20201103
  Serious: Yes (Death, Hospitalization)
  Sender: FDA-Public Use
  Company Number: None

PATIENT
  Age: 73 Year
  Sex: Female
  Weight: 63.6 kg

DRUGS (2)
  1. DAUNORUBICIN [Suspect]
     Active Substance: DAUNORUBICIN
     Dates: end: 20131204
  2. CYTARABINE. [Suspect]
     Active Substance: CYTARABINE
     Dates: end: 20131208

REACTIONS (8)
  - Pneumonia pseudomonal [None]
  - Pneumonia [None]
  - Pyrexia [None]
  - Sepsis [None]
  - Acute kidney injury [None]
  - General physical health deterioration [None]
  - Respiratory failure [None]
  - Neutropenia [None]

NARRATIVE: CASE EVENT DATE: 20131215
